FAERS Safety Report 11617799 (Version 2)
Quarter: 2015Q4

REPORT INFORMATION
  Report Type: Spontaneous
  Country: JP (occurrence: JP)
  Receive Date: 20151009
  Receipt Date: 20151110
  Transmission Date: 20160304
  Serious: Yes (Hospitalization, Disabling)
  Sender: FDA-Public Use
  Company Number: JP-ALLERGAN-1520722US

PATIENT
  Age: 85 Year
  Sex: Female

DRUGS (2)
  1. HYALEIN [Concomitant]
     Active Substance: HYALURONATE SODIUM
     Indication: PRODUCT USED FOR UNKNOWN INDICATION
     Dosage: UNK
  2. ALPHAGAN P [Suspect]
     Active Substance: BRIMONIDINE TARTRATE
     Indication: NORMAL TENSION GLAUCOMA
     Dosage: 2 GTT, BID
     Route: 047
     Dates: start: 20130718, end: 20140929

REACTIONS (4)
  - Intraocular pressure fluctuation [Unknown]
  - Lumbar vertebral fracture [Unknown]
  - Therapeutic response decreased [Unknown]
  - Visual field defect [Unknown]

NARRATIVE: CASE EVENT DATE: 20140416
